FAERS Safety Report 16129143 (Version 1)
Quarter: 2019Q1

REPORT INFORMATION
  Report Type: Report from Study
  Country: DE (occurrence: DE)
  Receive Date: 20190328
  Receipt Date: 20190328
  Transmission Date: 20190418
  Serious: Yes (Hospitalization, Other)
  Sender: FDA-Public Use
  Company Number: DE-BAYER-2019-056135

PATIENT
  Age: 25 Year
  Sex: Female

DRUGS (1)
  1. KYLEENA [Suspect]
     Active Substance: LEVONORGESTREL
     Indication: CONTRACEPTION
     Dosage: 17.5 MCG/24HR, CONT
     Route: 015
     Dates: start: 20171207, end: 201901

REACTIONS (5)
  - Mood swings [None]
  - Fatigue [None]
  - Depression [None]
  - Apathy [None]
  - Abdominal pain [None]

NARRATIVE: CASE EVENT DATE: 201802
